FAERS Safety Report 10218453 (Version 2)
Quarter: 2014Q2

REPORT INFORMATION
  Report Type: Report from Study
  Country: US (occurrence: US)
  Receive Date: 20140605
  Receipt Date: 20140605
  Transmission Date: 20141212
  Serious: Yes (Other)
  Sender: FDA-Public Use
  Company Number: PHEH2014US010616

PATIENT
  Age: 51 Year
  Sex: Male

DRUGS (1)
  1. SIGNIFOR [Suspect]
     Indication: PITUITARY-DEPENDENT CUSHING^S SYNDROME
     Dosage: 600 UG, BID
     Route: 058
     Dates: start: 20140109, end: 20140516

REACTIONS (4)
  - Cholecystitis infective [Unknown]
  - Cholelithiasis [Unknown]
  - Abdominal pain [Unknown]
  - Procedural complication [Unknown]
